FAERS Safety Report 5311689-7 (Version None)
Quarter: 2007Q2

REPORT INFORMATION
  Report Type: 
  Country: None (occurrence: None)
  Receive Date: 20070426
  Receipt Date: 20070426
  Transmission Date: 20071010
  Serious: No
  Sender: FDA-Public Use
  Company Number: None

PATIENT
  Age: 29 Year
  Sex: Male
  Weight: 73.4827 kg

DRUGS (3)
  1. NEXIUM [Suspect]
     Indication: GASTROOESOPHAGEAL REFLUX DISEASE
     Dosage: 40 MG ONCE A DAY
     Dates: start: 20061107, end: 20061117
  2. EX-LAX [Concomitant]
  3. FIBER [Concomitant]

REACTIONS (2)
  - ABDOMINAL DISTENSION [None]
  - HEPATITIS ACUTE [None]
